FAERS Safety Report 8129742-1 (Version None)
Quarter: 2012Q1

REPORT INFORMATION
  Report Type: 
  Country: None (occurrence: None)
  Receive Date: 20120210
  Receipt Date: 20120208
  Transmission Date: 20120608
  Serious: No
  Sender: FDA-Public Use
  Company Number: US-PFIZER INC-2012035094

PATIENT
  Sex: Female
  Weight: 72.562 kg

DRUGS (1)
  1. GEODON [Suspect]
     Indication: BIPOLAR DISORDER
     Dosage: 40 MG, 1X/DAY
     Route: 048

REACTIONS (2)
  - BLOOD CHOLESTEROL ABNORMAL [None]
  - INSOMNIA [None]
